FAERS Safety Report 20191662 (Version 1)
Quarter: 2021Q4

REPORT INFORMATION
  Report Type: Spontaneous
  Country: CH (occurrence: CH)
  Receive Date: 20211216
  Receipt Date: 20211216
  Transmission Date: 20220303
  Serious: Yes (Other)
  Sender: FDA-Public Use
  Company Number: CH-BRISTOL-MYERS SQUIBB COMPANY-BMS-2021-133023

PATIENT
  Sex: Male

DRUGS (2)
  1. NIVOLUMAB [Suspect]
     Active Substance: NIVOLUMAB
     Indication: Renal cell carcinoma
     Dosage: 4 CYCLES
     Route: 065
     Dates: start: 20190710, end: 20190905
  2. IPILIMUMAB [Suspect]
     Active Substance: IPILIMUMAB
     Indication: Renal cell carcinoma
     Dosage: 4 CYCLES
     Route: 065
     Dates: start: 20190710, end: 20190905

REACTIONS (3)
  - Colitis ulcerative [Unknown]
  - Embolism [Unknown]
  - Transaminases increased [Unknown]
